FAERS Safety Report 4748332-1 (Version None)
Quarter: 2005Q3

REPORT INFORMATION
  Report Type: 
  Country: None (occurrence: None)
  Receive Date: 20050818
  Receipt Date: 20050513
  Transmission Date: 20060218
  Serious: Yes (Death)
  Sender: FDA-Public Use
  Company Number: US-MERCK-0505USA01945

PATIENT
  Age: 54 Year
  Sex: Male
  Weight: 97 kg

DRUGS (16)
  1. VIOXX [Suspect]
     Indication: ARTHRITIS
     Route: 048
     Dates: start: 20001001, end: 20030523
  2. PROPOXYPHENE HYDROCHLORIDE [Concomitant]
     Route: 065
  3. CATAPRES [Concomitant]
     Indication: HYPERTENSION
     Route: 065
     Dates: start: 19980101, end: 20030101
  4. LESCOL [Concomitant]
     Indication: BLOOD CHOLESTEROL INCREASED
     Route: 065
     Dates: start: 20010501, end: 20010701
  5. WELLBUTRIN [Concomitant]
     Route: 065
  6. DURADRIN [Concomitant]
     Route: 065
  7. METHYLPREDNISOLONE [Concomitant]
     Route: 065
  8. CARISOPRODOL [Concomitant]
     Route: 065
  9. HYDROXYZINE HYDROCHLORIDE [Concomitant]
     Route: 065
  10. ULTRACET [Concomitant]
     Route: 065
  11. FIORINAL [Concomitant]
     Route: 065
  12. LIBRIUM [Concomitant]
     Route: 065
  13. AUGMENTIN '125' [Concomitant]
     Route: 065
  14. PRILOSEC [Concomitant]
     Route: 065
  15. ZYRTEC [Concomitant]
     Route: 065
  16. ANALGESIC OR ANESTHETIC (UNSPECIFIED) [Concomitant]
     Route: 065

REACTIONS (2)
  - BLOOD CHOLESTEROL INCREASED [None]
  - MYOCARDIAL INFARCTION [None]
